FAERS Safety Report 18750988 (Version 1)
Quarter: 2021Q1

REPORT INFORMATION
  Report Type: Spontaneous
  Country: DE (occurrence: DE)
  Receive Date: 20210118
  Receipt Date: 20210118
  Transmission Date: 20210419
  Serious: Yes (Other)
  Sender: FDA-Public Use
  Company Number: DE-ROCHE-2750953

PATIENT
  Age: 81 Year

DRUGS (5)
  1. BENDAMUSTINE [Suspect]
     Active Substance: BENDAMUSTINE
     Indication: DIFFUSE LARGE B-CELL LYMPHOMA
     Route: 065
     Dates: start: 201801
  2. RITUXIMAB. [Suspect]
     Active Substance: RITUXIMAB
     Indication: DIFFUSE LARGE B-CELL LYMPHOMA
     Route: 065
  3. CHOP [Suspect]
     Active Substance: CYCLOPHOSPHAMIDE\DOXORUBICIN\PREDNISONE\VINCRISTINE
     Indication: DIFFUSE LARGE B-CELL LYMPHOMA
     Dosage: 6 CYCLES
     Route: 065
  4. PIXANTRONE [Suspect]
     Active Substance: PIXANTRONE
     Indication: DIFFUSE LARGE B-CELL LYMPHOMA
     Dosage: 6 CYCLES
     Route: 065
  5. OBINUTUZUMAB. [Suspect]
     Active Substance: OBINUTUZUMAB
     Indication: DIFFUSE LARGE B-CELL LYMPHOMA
     Dosage: 6 CYCLES
     Route: 042

REACTIONS (1)
  - Diffuse large B-cell lymphoma recurrent [Recovered/Resolved]

NARRATIVE: CASE EVENT DATE: 201801
